FAERS Safety Report 5458175-1 (Version None)
Quarter: 2007Q3

REPORT INFORMATION
  Report Type: 
  Country: None (occurrence: None)
  Receive Date: 20070917
  Receipt Date: 20070508
  Transmission Date: 20080115
  Serious: Yes (Hospitalization, Other)
  Sender: FDA-Public Use
  Company Number: 16455

PATIENT
  Age: 10 Year
  Sex: Male

DRUGS (2)
  1. METHOTREXATE [Suspect]
     Indication: NON-HODGKIN'S LYMPHOMA
  2. BFM REGIMEN [Concomitant]

REACTIONS (1)
  - KLUVER-BUCY SYNDROME [None]
